FAERS Safety Report 5596963-1 (Version None)
Quarter: 2007Q4

REPORT INFORMATION
  Report Type: 
  Country: None (occurrence: None)
  Receive Date: 20071221
  Receipt Date: 20071011
  Transmission Date: 20080405
  Serious: No
  Sender: FDA-Public Use
  Company Number: SPV1-2007-04513

PATIENT
  Age: 7 Year
  Sex: Male
  Weight: 22.2 kg

DRUGS (8)
  1. VYVANSE [Suspect]
     Indication: ATTENTION DEFICIT/HYPERACTIVITY DISORDER
     Dosage: SEE IMAGE
     Route: 048
     Dates: start: 20070814, end: 20070926
  2. VYVANSE [Suspect]
     Indication: AUTISM
     Dosage: SEE IMAGE
     Route: 048
     Dates: start: 20070814, end: 20070926
  3. VYVANSE [Suspect]
     Indication: ATTENTION DEFICIT/HYPERACTIVITY DISORDER
     Dosage: SEE IMAGE
     Route: 048
     Dates: start: 20070920, end: 20071003
  4. VYVANSE [Suspect]
     Indication: AUTISM
     Dosage: SEE IMAGE
     Route: 048
     Dates: start: 20070920, end: 20071003
  5. VYVANSE [Suspect]
     Indication: ATTENTION DEFICIT/HYPERACTIVITY DISORDER
     Dosage: SEE IMAGE
     Route: 048
     Dates: start: 20071004
  6. VYVANSE [Suspect]
     Indication: AUTISM
     Dosage: SEE IMAGE
     Route: 048
     Dates: start: 20071004
  7. . [Concomitant]
  8. . [Concomitant]

REACTIONS (4)
  - AGGRESSION [None]
  - DRUG ADMINISTRATION ERROR [None]
  - HYPERACUSIS [None]
  - OFF LABEL USE [None]
